FAERS Safety Report 4588391-2 (Version None)
Quarter: 2005Q1

REPORT INFORMATION
  Report Type: 
  Country: None (occurrence: None)
  Receive Date: 20050215
  Receipt Date: 20050215
  Transmission Date: 20050727
  Serious: Yes (Hospitalization)
  Sender: FDA-Public Use
  Company Number: None

PATIENT
  Sex: Female
  Weight: 63.9572 kg

DRUGS (10)
  1. MEGACE [Suspect]
     Indication: WEIGHT CONTROL
     Dosage: 800 MG QD PO
     Route: 048
  2. CISPLATIN [Concomitant]
  3. FLUOROURACIL [Concomitant]
  4. NORVASC [Concomitant]
  5. SPIRONOLACTONE [Concomitant]
  6. TOPROL-XL [Concomitant]
  7. ABOTIC DROPS [Concomitant]
  8. METOCLOPRAMIDE [Concomitant]
  9. NEXIUM [Concomitant]
  10. PERCOCET [Concomitant]

REACTIONS (1)
  - PEPTIC ULCER [None]
